FAERS Safety Report 24335300 (Version 1)
Quarter: 2024Q3

REPORT INFORMATION
  Report Type: Report from Study
  Country: US (occurrence: US)
  Receive Date: 20240918
  Receipt Date: 20240918
  Transmission Date: 20241017
  Serious: Yes (Other)
  Sender: ABBVIE
  Company Number: US-ABBVIE-5850501

PATIENT
  Age: 63 Year
  Sex: Male

DRUGS (1)
  1. RINVOQ [Suspect]
     Active Substance: UPADACITINIB
     Indication: Rheumatoid arthritis
     Route: 048
     Dates: start: 20220202, end: 202408

REACTIONS (4)
  - Intervertebral disc protrusion [Unknown]
  - Arthralgia [Unknown]
  - Nerve compression [Unknown]
  - Back pain [Unknown]

NARRATIVE: CASE EVENT DATE: 20230601
